FAERS Safety Report 7518624-1 (Version None)
Quarter: 2011Q2

REPORT INFORMATION
  Report Type: 
  Country: None (occurrence: None)
  Receive Date: 20110601
  Receipt Date: 20110601
  Transmission Date: 20111010
  Serious: Yes (Death, Life-Threatening, Hospitalization)
  Sender: FDA-Public Use
  Company Number: None

PATIENT
  Age: 86 Year
  Sex: Male
  Weight: 81.6475 kg

DRUGS (2)
  1. ACETAZOLAMIDE [Concomitant]
  2. DIAMOX [Suspect]
     Indication: GLAUCOMA
     Dosage: 2 ORANGE CAPSULES TWICE DAILY
     Dates: start: 20110325, end: 20110330

REACTIONS (13)
  - STOMATITIS [None]
  - POLYURIA [None]
  - OROPHARYNGEAL PAIN [None]
  - FALL [None]
  - COMPLETED SUICIDE [None]
  - LETHARGY [None]
  - DECREASED APPETITE [None]
  - DEHYDRATION [None]
  - THIRST [None]
  - SUICIDAL IDEATION [None]
  - DEPRESSION [None]
  - DYSSTASIA [None]
  - GUN SHOT WOUND [None]
